FAERS Safety Report 5840855-7 (Version None)
Quarter: 2008Q3

REPORT INFORMATION
  Report Type: 
  Country: None (occurrence: None)
  Receive Date: 20080811
  Receipt Date: 20080731
  Transmission Date: 20090109
  Serious: No
  Sender: FDA-Public Use
  Company Number: US-BOEHRINGER INGELHEIM GMBH, GERMANY-2008-BP-10820BP

PATIENT
  Age: 66 Year
  Sex: Male
  Weight: 88 kg

DRUGS (5)
  1. SPIRIVA [Suspect]
     Indication: CHRONIC OBSTRUCTIVE PULMONARY DISEASE
     Route: 055
     Dates: start: 20060707, end: 20080324
  2. VALIUM [Concomitant]
     Dates: start: 20070901
  3. MELOXICAM [Concomitant]
     Dates: start: 20070301
  4. ULTRAM [Concomitant]
     Dates: start: 20070301
  5. DARVOCET-N 100 [Concomitant]

REACTIONS (2)
  - DRY EYE [None]
  - VISION BLURRED [None]
